FAERS Safety Report 12534605 (Version 1)
Quarter: 2016Q3

REPORT INFORMATION
  Report Type: Not Available
  Country: IL (occurrence: IL)
  Receive Date: 20160706
  Receipt Date: 20160706
  Transmission Date: 20161109
  Serious: Yes (Hospitalization)
  Sender: FDA-Public Use
  Company Number: IL-MIDATECHPHARMA-2016-IL-000001

PATIENT
  Age: 57 Year
  Sex: Female

DRUGS (1)
  1. TAMOXIFEN (NON-SPECIFIC) [Suspect]
     Active Substance: TAMOXIFEN
     Dosage: UNKNOWN
     Route: 065

REACTIONS (4)
  - Papilloedema [Recovering/Resolving]
  - Blindness [Recovering/Resolving]
  - Toxic optic neuropathy [Recovering/Resolving]
  - Visual field defect [Recovering/Resolving]
